FAERS Safety Report 4435019-8 (Version None)
Quarter: 2004Q3

REPORT INFORMATION
  Report Type: 
  Country: None (occurrence: None)
  Receive Date: 20040827
  Receipt Date: 20040827
  Transmission Date: 20050211
  Serious: Yes (Other)
  Sender: FDA-Public Use
  Company Number: None

PATIENT
  Age: 35 Year
  Sex: Female
  Weight: 54.4316 kg

DRUGS (6)
  1. LOVENOX [Suspect]
     Indication: DEEP VEIN THROMBOSIS
     Dosage: 60 MG TWICE DAIL SUBCUTANEOUS
     Route: 058
     Dates: start: 20040707, end: 20040809
  2. WARFARIN [Concomitant]
  3. PLAVIX [Concomitant]
  4. ASPIRIN [Concomitant]
  5. DARVOCET-N 100 [Concomitant]
  6. LASIX [Concomitant]

REACTIONS (2)
  - FEELING ABNORMAL [None]
  - SWOLLEN TONGUE [None]
